FAERS Safety Report 18888335 (Version 4)
Quarter: 2022Q3

REPORT INFORMATION
  Report Type: Report from Study
  Country: US (occurrence: US)
  Receive Date: 20210213
  Receipt Date: 20220720
  Transmission Date: 20221027
  Serious: Yes (Other)
  Sender: FDA-Public Use
  Company Number: US-NOVARTISTESTPH-NVSC2021US033247

PATIENT
  Sex: Female

DRUGS (2)
  1. MAYZENT [Suspect]
     Active Substance: SIPONIMOD
     Indication: Relapsing-remitting multiple sclerosis
     Dosage: 2 MG
     Route: 048
  2. MAYZENT [Suspect]
     Active Substance: SIPONIMOD
     Indication: Secondary progressive multiple sclerosis
     Dosage: 1 MG
     Route: 048

REACTIONS (11)
  - Blindness unilateral [Unknown]
  - Visual impairment [Unknown]
  - Gait disturbance [Unknown]
  - Fall [Unknown]
  - Memory impairment [Unknown]
  - Vision blurred [Unknown]
  - Joint injury [Unknown]
  - Contusion [Unknown]
  - Muscular weakness [Unknown]
  - Pain [Unknown]
  - Drug ineffective [Unknown]
